FAERS Safety Report 9813335 (Version 2)
Quarter: 2014Q1

REPORT INFORMATION
  Report Type: Spontaneous
  Country: US (occurrence: US)
  Receive Date: 20140113
  Receipt Date: 20140113
  Transmission Date: 20141002
  Serious: Yes (Other)
  Sender: FDA-Public Use
  Company Number: US-GE HEALTHCARE MEDICAL DIAGNOSTICS-OSCN-PR-0905S-0250

PATIENT
  Age: 65 Year
  Sex: Male

DRUGS (13)
  1. GADOLINIUM (UNSPECIFIED) [Suspect]
     Indication: PRODUCT USED FOR UNKNOWN INDICATION
     Route: 042
     Dates: start: 20040820, end: 20040820
  2. GADOLINIUM (UNSPECIFIED) [Suspect]
     Route: 042
     Dates: start: 20050101, end: 20050101
  3. GADOLINIUM (UNSPECIFIED) [Suspect]
     Route: 042
     Dates: start: 20060101, end: 20060101
  4. MAGNEVIST [Suspect]
     Indication: PRODUCT USED FOR UNKNOWN INDICATION
     Route: 042
     Dates: start: 20041008, end: 20041008
  5. MAGNEVIST [Suspect]
     Route: 042
     Dates: start: 20041124, end: 20041124
  6. MAGNEVIST [Suspect]
     Route: 042
     Dates: start: 20050211, end: 20050211
  7. MAGNEVIST [Suspect]
     Route: 042
     Dates: start: 20050222, end: 20050222
  8. MAGNEVIST [Suspect]
     Route: 042
     Dates: start: 20050719, end: 20050719
  9. MAGNEVIST [Suspect]
     Route: 042
     Dates: start: 20051230, end: 20051230
  10. MAGNEVIST [Suspect]
     Route: 042
     Dates: start: 20060126, end: 20060126
  11. MAGNEVIST [Suspect]
     Route: 042
     Dates: start: 20060425, end: 20060425
  12. MAGNEVIST [Suspect]
     Route: 042
     Dates: start: 20060706, end: 20060706
  13. MAGNEVIST [Suspect]
     Route: 042
     Dates: start: 20070220, end: 20070220

REACTIONS (1)
  - Nephrogenic systemic fibrosis [Not Recovered/Not Resolved]
